FAERS Safety Report 7862511-6 (Version None)
Quarter: 2011Q4

REPORT INFORMATION
  Report Type: 
  Country: None (occurrence: None)
  Receive Date: 20111027
  Receipt Date: 20101103
  Transmission Date: 20120403
  Serious: No
  Sender: FDA-Public Use
  Company Number: US-AMGEN-USASP2010003036

PATIENT
  Age: 58 Year
  Sex: Female

DRUGS (1)
  1. ENBREL [Suspect]
     Indication: RHEUMATOID ARTHRITIS
     Route: 058
     Dates: start: 20100521

REACTIONS (11)
  - FATIGUE [None]
  - INJECTION SITE ERYTHEMA [None]
  - BREAST MASS [None]
  - HYPERHIDROSIS [None]
  - INJECTION SITE PAIN [None]
  - VENOUS INSUFFICIENCY [None]
  - NODULE [None]
  - CELLULITIS [None]
  - RASH PAPULAR [None]
  - BREAST NECROSIS [None]
  - HEADACHE [None]
